FAERS Safety Report 5279597-8 (Version None)
Quarter: 2007Q1

REPORT INFORMATION
  Report Type: 
  Country: None (occurrence: None)
  Receive Date: 20070328
  Receipt Date: 20070317
  Transmission Date: 20070707
  Serious: Yes (Other)
  Sender: FDA-Public Use
  Company Number: US-PFIZER INC-2007022228

PATIENT
  Age: 50 Year
  Sex: Female
  Weight: 70.3 kg

DRUGS (1)
  1. LYRICA [Suspect]
     Indication: HEADACHE
     Route: 048
     Dates: start: 20070101, end: 20070317

REACTIONS (6)
  - BLOOD GLUCOSE INCREASED [None]
  - GOITRE [None]
  - NODULE [None]
  - PLEURISY [None]
  - RASH [None]
  - SKIN DISORDER [None]
